FAERS Safety Report 5071997-4 (Version None)
Quarter: 2006Q3

REPORT INFORMATION
  Report Type: 
  Country: None (occurrence: None)
  Receive Date: 20060801
  Receipt Date: 20060724
  Transmission Date: 20061208
  Serious: Yes (Other)
  Sender: FDA-Public Use
  Company Number: 2006092221

PATIENT
  Age: 63 Year
  Sex: Female

DRUGS (9)
  1. ZYRTEC [Suspect]
     Indication: SINUSITIS
     Dosage: 10 MG (10 MG, 1 IN 1 D), ORAL
     Route: 048
     Dates: start: 20010101
  2. ALL OTHER THERAPEUTIC PRODUCTS [Concomitant]
  3. AMOXICILLIN [Concomitant]
  4. DRUG, UNSPECIFIED [Concomitant]
  5. CLONAZEPAM [Concomitant]
  6. LIPITOR [Concomitant]
  7. MULTIVITAMIN [Concomitant]
  8. CALCIUM GLUCONATE [Concomitant]
  9. MAGNESIUM [Concomitant]

REACTIONS (4)
  - DIVERTICULUM [None]
  - DRUG INEFFECTIVE [None]
  - PAIN [None]
  - PHARYNGITIS [None]
